FAERS Safety Report 8198753-2 (Version None)
Quarter: 2012Q1

REPORT INFORMATION
  Report Type: 
  Country: None (occurrence: None)
  Receive Date: 20120309
  Receipt Date: 20120209
  Transmission Date: 20120608
  Serious: No
  Sender: FDA-Public Use
  Company Number: US-AMGEN-USASP2012008841

PATIENT
  Age: 78 Year
  Sex: Female

DRUGS (3)
  1. CALCIUM CARBONATE [Concomitant]
  2. PROLIA [Suspect]
     Indication: OSTEOPOROSIS POSTMENOPAUSAL
     Dosage: UNK
     Dates: start: 20111012
  3. PRILOSEC [Concomitant]

REACTIONS (9)
  - GAIT DISTURBANCE [None]
  - ABDOMINAL DISCOMFORT [None]
  - PYREXIA [None]
  - ASTHENIA [None]
  - DIARRHOEA [None]
  - CYSTITIS [None]
  - CHILLS [None]
  - NAUSEA [None]
  - INFLUENZA [None]
